FAERS Safety Report 19408548 (Version 1)
Quarter: 2021Q2

REPORT INFORMATION
  Report Type: Spontaneous
  Country: DE (occurrence: DE)
  Receive Date: 20210612
  Receipt Date: 20210612
  Transmission Date: 20210717
  Serious: Yes (Hospitalization)
  Sender: FDA-Public Use
  Company Number: DE-TEVA-2021-DE-1920759

PATIENT
  Age: 72 Year
  Sex: Female

DRUGS (6)
  1. PHENYTOIN. [Suspect]
     Active Substance: PHENYTOIN
     Dosage: 1.5 DOSAGE FORMS DAILY; 100 MG, 0?0?1.5?0,
     Route: 048
  2. ACETYLSALICYLSAEURE [Suspect]
     Active Substance: ASPIRIN
     Dosage: 100 MILLIGRAM DAILY;   1?0?0?0,
     Route: 048
  3. AMLODIPINE [Concomitant]
     Active Substance: AMLODIPINE BESYLATE
     Dosage: 1 DOSAGE FORMS DAILY; 5 MG, 0.5?0?0.5?0,
     Route: 048
  4. L?THYROX HEXAL 100 [Concomitant]
     Dosage: 1.5 DOSAGE FORMS DAILY; 100 UG, 1.5?0?0?0,
     Route: 048
  5. L?THYROX HEXAL 100 [Concomitant]
     Dosage: 100 MICROGRAM DAILY;   1?0?0?0,
     Route: 048
  6. ATORVASTATIN [Concomitant]
     Active Substance: ATORVASTATIN
     Dosage: 1 DOSAGE FORMS DAILY; 20 MG, 0.5?0?0.5?0,
     Route: 048

REACTIONS (4)
  - Abdominal pain lower [Unknown]
  - Diarrhoea [Unknown]
  - Anal haemorrhage [Unknown]
  - Nausea [Unknown]
